FAERS Safety Report 20157322 (Version 1)
Quarter: 2021Q4

REPORT INFORMATION
  Report Type: Spontaneous
  Country: DE (occurrence: DE)
  Receive Date: 20211207
  Receipt Date: 20211207
  Transmission Date: 20220303
  Serious: Yes (Hospitalization, Other)
  Sender: FDA-Public Use
  Company Number: DE-MLMSERVICE-20211122-3233855-1

PATIENT
  Age: 48 Year
  Sex: Female

DRUGS (4)
  1. CYCLOSPORINE [Suspect]
     Active Substance: CYCLOSPORINE
     Indication: Immunosuppressant drug therapy
     Dosage: TARGET LEVEL 200 NG/ML, TWICE DAILY
  2. MYCOPHENOLATE MOFETIL [Concomitant]
     Active Substance: MYCOPHENOLATE MOFETIL
     Indication: Immunosuppressant drug therapy
     Dosage: MMF, 2 X 1000MG DAILY
  3. CORTISONE [Concomitant]
     Active Substance: CORTISONE
     Indication: Immunosuppressant drug therapy
     Dosage: INITIAL 5MG/KG BODYWEIGHT
  4. CORTISONE [Concomitant]
     Active Substance: CORTISONE
     Dosage: CONSERVATION DOSE 5MG DAILY

REACTIONS (2)
  - Posterior reversible encephalopathy syndrome [Recovering/Resolving]
  - Leukoencephalopathy [Recovering/Resolving]
